FAERS Safety Report 6120402-5 (Version None)
Quarter: 2009Q1

REPORT INFORMATION
  Report Type: 
  Country: None (occurrence: None)
  Receive Date: 20090317
  Receipt Date: 20090304
  Transmission Date: 20090719
  Serious: Yes (Other)
  Sender: FDA-Public Use
  Company Number: PHHY2009GB05595

PATIENT
  Sex: Male

DRUGS (3)
  1. CLOZARIL [Suspect]
     Indication: SCHIZOPHRENIA
     Dosage: 400 MG
     Dates: start: 19990329, end: 20090213
  2. TETRABENAZINE [Concomitant]
     Indication: TARDIVE DYSKINESIA
     Dosage: 500 MG
     Route: 048
  3. VALPROATE SODIUM [Concomitant]
     Dosage: 400 MG
     Route: 048

REACTIONS (1)
  - ELECTROCARDIOGRAM QT PROLONGED [None]
